FAERS Safety Report 8623731-6 (Version None)
Quarter: 2012Q3

REPORT INFORMATION
  Report Type: 
  Country: None (occurrence: None)
  Receive Date: 20120827
  Receipt Date: 20120816
  Transmission Date: 20120928
  Serious: Yes (Other)
  Sender: FDA-Public Use
  Company Number: US-ASTRAZENECA-2012SE57919

PATIENT
  Age: 76 Year
  Sex: Female

DRUGS (4)
  1. CRESTOR [Suspect]
     Indication: BLOOD CHOLESTEROL ABNORMAL
     Route: 048
     Dates: start: 20030101
  2. ZOCOR [Concomitant]
  3. CRESTOR [Suspect]
     Route: 048
     Dates: end: 20111001
  4. LIPITOR [Concomitant]

REACTIONS (5)
  - MYALGIA [None]
  - DRUG HYPERSENSITIVITY [None]
  - AMYOTROPHIC LATERAL SCLEROSIS [None]
  - STRESS [None]
  - PAIN [None]
